FAERS Safety Report 4322570-4 (Version None)
Quarter: 2004Q1

REPORT INFORMATION
  Report Type: 
  Country: None (occurrence: None)
  Receive Date: 20040319
  Receipt Date: 20040311
  Transmission Date: 20041129
  Serious: Yes (Hospitalization)
  Sender: FDA-Public Use
  Company Number: ERP04000071

PATIENT
  Age: 77 Year
  Sex: Female

DRUGS (7)
  1. ACTONEL [Suspect]
     Dosage: 1/DAY, ORAL
     Route: 048
     Dates: start: 20040215, end: 20040101
  2. ALDACTONE [Concomitant]
  3. CACIT D3 (CALCIUM CARBONATE, COLECAL CIFEROL) [Concomitant]
  4. EFFERVESCENT GRANULES [Concomitant]
  5. FELDENE [Concomitant]
  6. ACETYLSALICYLIC ACID SRT [Concomitant]
  7. FORLAX (MACROGOL) [Concomitant]

REACTIONS (1)
  - GASTRIC PERFORATION [None]
